FAERS Safety Report 23278266 (Version 2)
Quarter: 2024Q3

REPORT INFORMATION
  Report Type: Report from Study
  Country: DE (occurrence: DE)
  Receive Date: 20231208
  Receipt Date: 20240711
  Transmission Date: 20241017
  Serious: Yes (Hospitalization, Other)
  Sender: PFIZER
  Company Number: DE-BRISTOL-MYERS SQUIBB COMPANY-2023-170066

PATIENT
  Age: 63 Year
  Sex: Female

DRUGS (19)
  1. METHOTREXATE SODIUM [Suspect]
     Active Substance: METHOTREXATE SODIUM
     Dosage: 10 MG PER WEEK
  2. ORENCIA [Suspect]
     Active Substance: ABATACEPT
     Indication: Rheumatoid arthritis
     Dosage: 125 MG, WEEKLY
     Route: 058
  3. METAMIZOLE [Concomitant]
     Active Substance: METAMIZOLE
     Dosage: 500 MG
  4. FENOTEROL\IPRATROPIUM BROMIDE [Concomitant]
     Active Substance: FENOTEROL\IPRATROPIUM BROMIDE
     Dosage: 20/50 MICROGRAM AS NEEDED
  5. PREGABALIN [Concomitant]
     Active Substance: PREGABALIN
     Dosage: 75 MG
  6. MIRTAZAPINE [Concomitant]
     Active Substance: MIRTAZAPINE
     Dosage: 30 MG
  7. VENLAFAXINE [Concomitant]
     Active Substance: VENLAFAXINE HYDROCHLORIDE
     Dosage: 150 MG
  8. LUMIVA [Concomitant]
     Dosage: 1 MG
  9. TOPIRAMATE [Concomitant]
     Active Substance: TOPIRAMATE
     Dosage: 25 MG
  10. GLYCOPYRROLATE\INDACATEROL\MOMETASONE FUROATE [Concomitant]
     Active Substance: GLYCOPYRROLATE\INDACATEROL\MOMETASONE FUROATE
     Dosage: 114/46 MICROGRAM
  11. TOLVAPTAN [Concomitant]
     Active Substance: TOLVAPTAN
     Dosage: 15 MG
  12. FOLIC ACID [Concomitant]
     Active Substance: FOLIC ACID
     Dosage: 5 MG
  13. SPIRONOLACTONE [Concomitant]
     Active Substance: SPIRONOLACTONE
     Dosage: 50 MG
  14. VITAMIN D3 [Concomitant]
     Active Substance: CHOLECALCIFEROL
     Dosage: 20000 IU
  15. ESOMEPRAZOLE [Concomitant]
     Active Substance: ESOMEPRAZOLE
     Dosage: 40 MG
  16. ASPIRIN [Concomitant]
     Active Substance: ASPIRIN
     Dosage: 100 MG
  17. PRAMIPEXOLE [Concomitant]
     Active Substance: PRAMIPEXOLE\PRAMIPEXOLE DIHYDROCHLORIDE
     Dosage: 0.18 MG
  18. SIMVASTATIN [Concomitant]
     Active Substance: SIMVASTATIN
     Dosage: 20 MG
  19. TAPENTADOL [Concomitant]
     Active Substance: TAPENTADOL
     Dosage: UNK

REACTIONS (3)
  - Pulmonary granuloma [Recovered/Resolved]
  - Mycobacterium test positive [Recovered/Resolved]
  - Mycobacterium avium complex infection [Recovered/Resolved]

NARRATIVE: CASE EVENT DATE: 20230501
